FAERS Safety Report 18256155 (Version 1)
Quarter: 2020Q3

REPORT INFORMATION
  Report Type: Spontaneous
  Country: BE (occurrence: BE)
  Receive Date: 20200911
  Receipt Date: 20200911
  Transmission Date: 20201103
  Serious: Yes (Life-Threatening, Other)
  Sender: FDA-Public Use
  Company Number: BE-SA-2020SA245385

PATIENT

DRUGS (12)
  1. LYSOMUCIL [Concomitant]
     Active Substance: ACETYLCYSTEINE
     Dosage: 1 DF, QD,BY JEJUNAL PROBE/TUBE
  2. LINEZOLID. [Interacting]
     Active Substance: LINEZOLID
     Indication: STAPHYLOCOCCAL INFECTION
     Route: 041
     Dates: start: 20200702, end: 20200713
  3. ENOXAPARIN SODIUM. [Suspect]
     Active Substance: ENOXAPARIN SODIUM
     Indication: THROMBOSIS PROPHYLAXIS
     Dosage: 20 MG QD
     Route: 058
     Dates: start: 20200413, end: 20200713
  4. AMIODARONE HYDROCHLORIDE. [Interacting]
     Active Substance: AMIODARONE HYDROCHLORIDE
     Indication: ATRIAL FIBRILLATION
  5. CEFEPIME HYDROCHLORIDE. [Interacting]
     Active Substance: CEFEPIME HYDROCHLORIDE
     Indication: LUNG DISORDER
     Route: 042
     Dates: start: 20200707, end: 20200710
  6. ASPEGIC [ACETYLSALICYLIC ACID] [Concomitant]
     Active Substance: ASPIRIN
  7. OMEPRAZOLE. [Concomitant]
     Active Substance: OMEPRAZOLE
     Dosage: PR?PARATION MAGISTRALE D^OMEPRAZOLE EN SUSPENSION R?ALIS?E PAR L^HOPITAL (PAR SONDE J?JUNALE)
  8. FLAGYL [Interacting]
     Active Substance: METRONIDAZOLE\METRONIDAZOLE HYDROCHLORIDE
     Indication: KLEBSIELLA INFECTION
     Dosage: 1500 MG CONT
     Route: 042
     Dates: start: 20200529, end: 20200715
  9. FLUCONAZOLE. [Interacting]
     Active Substance: FLUCONAZOLE
     Indication: CANDIDA INFECTION
     Route: 042
     Dates: start: 20200529, end: 20200715
  10. CEFTAZIDIME. [Interacting]
     Active Substance: CEFTAZIDIME
     Indication: LUNG DISORDER
     Route: 042
     Dates: start: 20200710, end: 20200718
  11. PARACETAMOL [Concomitant]
     Active Substance: ACETAMINOPHEN
     Dosage: PARACETAMOL 500 MG/6H TABLET (BY JEJUNAL PROBE/TUBE)
  12. ISOTEN [Concomitant]
     Active Substance: BISOPROLOL FUMARATE

REACTIONS (4)
  - Skin wound [Recovered/Resolved]
  - Drug interaction [Unknown]
  - Skin haemorrhage [Recovered/Resolved]
  - Thrombocytopenia [Recovered/Resolved]

NARRATIVE: CASE EVENT DATE: 20200705
